FAERS Safety Report 21577529 (Version 2)
Quarter: 2023Q1

REPORT INFORMATION
  Report Type: Spontaneous
  Country: US (occurrence: US)
  Receive Date: 20221110
  Receipt Date: 20230123
  Transmission Date: 20230417
  Serious: Yes (Other)
  Sender: FDA-Public Use
  Company Number: US-002147023-NVSC2022US249098

PATIENT
  Sex: Female

DRUGS (1)
  1. DEXTROAMPHET SACCHARAT, AMPHET ASPARTATE, DEXTROAMPHET SULFATE AND AMP [Suspect]
     Active Substance: AMPHETAMINE ASPARTATE\AMPHETAMINE SULFATE\DEXTROAMPHETAMINE SACCHARATE\DEXTROAMPHETAMINE SULFATE
     Indication: Product used for unknown indication
     Dosage: 30 ML, TID, (100 TAB BO V2 US)
     Route: 065
     Dates: start: 20220728

REACTIONS (11)
  - Liver injury [Unknown]
  - Ocular icterus [Recovering/Resolving]
  - Chromaturia [Unknown]
  - Peripheral swelling [Unknown]
  - Hepatitis [Unknown]
  - Head discomfort [Unknown]
  - Headache [Unknown]
  - Urticaria [Unknown]
  - Product size issue [Unknown]
  - Physical product label issue [Unknown]
  - Product colour issue [Unknown]
